FAERS Safety Report 23792062 (Version 1)
Quarter: 2024Q2

REPORT INFORMATION
  Report Type: Spontaneous
  Country: CN (occurrence: CN)
  Receive Date: 20240429
  Receipt Date: 20240429
  Transmission Date: 20240716
  Serious: Yes (Hospitalization, Other)
  Sender: FDA-Public Use
  Company Number: CN-002147023-NVSC2024CN088813

PATIENT
  Age: 67 Year
  Sex: Male

DRUGS (1)
  1. SACUBITRIL\VALSARTAN [Suspect]
     Active Substance: SACUBITRIL\VALSARTAN
     Indication: Hypertension
     Dosage: 100 UG, BID
     Route: 048
     Dates: start: 20231001, end: 20231215

REACTIONS (6)
  - Hepatic function abnormal [Recovered/Resolved]
  - Hepatic failure [Unknown]
  - Vertebrobasilar insufficiency [Unknown]
  - Dizziness [Unknown]
  - Blood potassium decreased [Unknown]
  - Off label use [Unknown]

NARRATIVE: CASE EVENT DATE: 20231215
